FAERS Safety Report 5307033-1 (Version None)
Quarter: 2007Q2

REPORT INFORMATION
  Report Type: 
  Country: None (occurrence: None)
  Receive Date: 20070425
  Receipt Date: 20070413
  Transmission Date: 20071010
  Serious: Yes (Life-Threatening)
  Sender: FDA-Public Use
  Company Number: FR-ROCHE-492993

PATIENT
  Age: 50 Year
  Sex: Female
  Weight: 47 kg

DRUGS (6)
  1. ROCEPHIN [Suspect]
     Indication: DRUG USE FOR UNKNOWN INDICATION
     Route: 042
     Dates: start: 20070207, end: 20070219
  2. HYPNOVEL [Concomitant]
     Route: 042
     Dates: start: 20070207, end: 20070228
  3. MORPHINE [Concomitant]
     Route: 042
     Dates: start: 20070207, end: 20070226
  4. SOLUDACTONE [Concomitant]
     Route: 042
     Dates: start: 20070212, end: 20070214
  5. LEVOTHYROXINE SODIUM [Concomitant]
     Route: 048
  6. LASIX [Concomitant]
     Route: 042
     Dates: start: 20070212, end: 20070222

REACTIONS (1)
  - INTERSTITIAL LUNG DISEASE [None]
